FAERS Safety Report 14109992 (Version 1)
Quarter: 2017Q4

REPORT INFORMATION
  Report Type: Spontaneous
  Country: US (occurrence: US)
  Receive Date: 20171020
  Receipt Date: 20171020
  Transmission Date: 20180321
  Serious: No
  Sender: FDA-Public Use
  Company Number: US-TEVA-702828USA

PATIENT
  Age: 22 Year
  Sex: Female

DRUGS (1)
  1. SPRINTEC [Suspect]
     Active Substance: ETHINYL ESTRADIOL\NORGESTIMATE
     Dosage: 0.250MG/0.035MG
     Route: 065

REACTIONS (2)
  - Weight increased [Recovering/Resolving]
  - Metrorrhagia [Recovering/Resolving]

NARRATIVE: CASE EVENT DATE: 20161007
